FAERS Safety Report 6579797-0 (Version None)
Quarter: 2010Q1

REPORT INFORMATION
  Report Type: 
  Country: None (occurrence: None)
  Receive Date: 20100212
  Receipt Date: 20100202
  Transmission Date: 20100710
  Serious: Yes (Other)
  Sender: FDA-Public Use
  Company Number: CA-ROCHE-683789

PATIENT
  Sex: Female

DRUGS (4)
  1. PEGASYS [Suspect]
     Indication: DRUG USE FOR UNKNOWN INDICATION
     Dosage: INTERUPED FOR THREE WEEKS
     Route: 058
     Dates: start: 20081215, end: 20090901
  2. PEGASYS [Suspect]
     Route: 058
     Dates: end: 20091124
  3. COPEGUS [Suspect]
     Indication: DRUG USE FOR UNKNOWN INDICATION
     Dosage: INTERRUPTED FOR THREE WEEKS
     Route: 048
     Dates: start: 20081215, end: 20090901
  4. COPEGUS [Suspect]
     Route: 048
     Dates: end: 20091130

REACTIONS (15)
  - ANAEMIA [None]
  - ASTHENIA [None]
  - BALANCE DISORDER [None]
  - CONVULSION [None]
  - DISTURBANCE IN ATTENTION [None]
  - EYE PAIN [None]
  - FATIGUE [None]
  - HEADACHE [None]
  - MEMORY IMPAIRMENT [None]
  - MYALGIA [None]
  - NAIL DISCOLOURATION [None]
  - NAUSEA [None]
  - PYREXIA [None]
  - VIRAL LOAD INCREASED [None]
  - VISION BLURRED [None]
